FAERS Safety Report 7557435-8 (Version None)
Quarter: 2011Q2

REPORT INFORMATION
  Report Type: 
  Country: None (occurrence: None)
  Receive Date: 20110620
  Receipt Date: 20110607
  Transmission Date: 20111010
  Serious: Yes (Hospitalization)
  Sender: FDA-Public Use
  Company Number: US-ROCHE-782821

PATIENT

DRUGS (2)
  1. BEVACIZUMAB [Suspect]
     Dosage: ON DAYS 1,15
     Route: 042
     Dates: start: 20101119, end: 20110506
  2. IXABEPILONE [Suspect]
     Dosage: ON DAYS 1,8 AND 15
     Route: 042
     Dates: start: 20101119, end: 20110506

REACTIONS (4)
  - DYSPNOEA [None]
  - DYSPHAGIA [None]
  - FATIGUE [None]
  - PLEURAL EFFUSION [None]
